FAERS Safety Report 19824013 (Version 2)
Quarter: 2022Q1

REPORT INFORMATION
  Report Type: Spontaneous
  Country: US (occurrence: US)
  Receive Date: 20210913
  Receipt Date: 20220131
  Transmission Date: 20220423
  Serious: No
  Sender: FDA-Public Use
  Company Number: US-PFIZER INC-202101126407

PATIENT
  Age: 55 Year
  Sex: Female
  Weight: 66.667 kg

DRUGS (9)
  1. IBRANCE [Suspect]
     Active Substance: PALBOCICLIB
     Indication: Breast cancer female
     Dosage: 125 MG, CYCLIC (DAILY ON DAYS 1-21 OF EACH 28 DAYS CYCLE)
     Route: 048
     Dates: start: 20210729
  2. IBRANCE [Suspect]
     Active Substance: PALBOCICLIB
     Indication: Breast cancer female
  3. MIRALAX [Concomitant]
     Active Substance: POLYETHYLENE GLYCOL 3350
     Dosage: 17 G (POWD PACK)
  4. ZOMETA [Concomitant]
     Active Substance: ZOLEDRONIC ACID
     Dosage: 4 MG (4 MG/100ML PGGYBK BTL)
  5. CALCIUM [Concomitant]
     Active Substance: CALCIUM
     Dosage: 500 MG
  6. ATIVAN [Concomitant]
     Active Substance: LORAZEPAM
     Dosage: 0.5 MG
  7. VITAMIN D NOS [Concomitant]
     Active Substance: VITAMIN D NOS
     Dosage: 10 UG
  8. IBUPROFEN [Concomitant]
     Active Substance: IBUPROFEN
     Dosage: 200 UG
  9. ANASTROZOLE [Concomitant]
     Active Substance: ANASTROZOLE
     Dosage: 1 MG

REACTIONS (3)
  - Constipation [Unknown]
  - Fatigue [Unknown]
  - Alopecia [Unknown]

NARRATIVE: CASE EVENT DATE: 20210101
